FAERS Safety Report 8970061 (Version 1)
Quarter: 2012Q4

REPORT INFORMATION
  Report Type: 
  Country: US (occurrence: US)
  Receive Date: 20121218
  Receipt Date: 20121218
  Transmission Date: 20130627
  Serious: Yes (Other)
  Sender: FDA-Public Use
  Company Number: US-BRISTOL-MYERS SQUIBB COMPANY-16213845

PATIENT
  Age: 56 Year
  Sex: Female

DRUGS (2)
  1. ABILIFY TABS [Suspect]
     Indication: HALLUCINATION, AUDITORY
     Route: 048
     Dates: start: 20110414, end: 20110929
  2. PAXIL [Concomitant]
     Route: 048

REACTIONS (1)
  - Blood glucose increased [Unknown]
